FAERS Safety Report 21184655 (Version 1)
Quarter: 2022Q3

REPORT INFORMATION
  Report Type: Spontaneous
  Country: US (occurrence: None)
  Receive Date: 20220805
  Receipt Date: 20220805
  Transmission Date: 20221027
  Serious: Yes (Other)
  Sender: FDA-Public Use
  Company Number: None

PATIENT
  Age: 67 Year
  Sex: Female

DRUGS (20)
  1. AMBRISENTAN [Suspect]
     Active Substance: AMBRISENTAN
     Indication: Pulmonary arterial hypertension
     Dosage: 10MG QD ORAL?
     Route: 048
     Dates: start: 20201215
  2. AMBRISENTAN [Suspect]
     Active Substance: AMBRISENTAN
     Indication: Heritable pulmonary arterial hypertension
  3. AMBRISENTAN [Suspect]
     Active Substance: AMBRISENTAN
     Indication: Pulmonary arterial hypertension
  4. TADALAFIL [Concomitant]
     Active Substance: TADALAFIL
  5. SELEXIPAG [Concomitant]
     Active Substance: SELEXIPAG
  6. ONDANSETRON [Concomitant]
     Active Substance: ONDANSETRON
  7. ONDANSETRON [Concomitant]
     Active Substance: ONDANSETRON
  8. CETIRIZINE [Concomitant]
     Active Substance: CETIRIZINE HYDROCHLORIDE
  9. FAMOTIDINE [Concomitant]
     Active Substance: FAMOTIDINE
  10. PREDNISONE [Concomitant]
     Active Substance: PREDNISONE
  11. KETOTIFEN [Concomitant]
     Active Substance: KETOTIFEN
  12. PSYLLIUM HUSK [Concomitant]
     Active Substance: PSYLLIUM HUSK
  13. YUVAFEM [Concomitant]
     Active Substance: ESTRADIOL HEMIHYDRATE
  14. TRIAMCINOLONE [Concomitant]
  15. HC top cream [Concomitant]
  16. FUROSEMIDE [Concomitant]
     Active Substance: FUROSEMIDE
  17. SPIRONOLACTONE [Concomitant]
     Active Substance: SPIRONOLACTONE
  18. MUPIROCIN [Concomitant]
     Active Substance: MUPIROCIN
  19. CALCIUM\VITAMIN D [Concomitant]
     Active Substance: CALCIUM\VITAMIN D
  20. TYLENOL [Concomitant]
     Active Substance: ACETAMINOPHEN

REACTIONS (5)
  - Abdominal pain [None]
  - Nausea [None]
  - Vomiting [None]
  - Colitis [None]
  - Gastritis [None]

NARRATIVE: CASE EVENT DATE: 20220701
